FAERS Safety Report 13048061 (Version 4)
Quarter: 2017Q1

REPORT INFORMATION
  Report Type: Spontaneous
  Country: US (occurrence: US)
  Receive Date: 20161220
  Receipt Date: 20170112
  Transmission Date: 20170428
  Serious: Yes (Other)
  Sender: FDA-Public Use
  Company Number: US-GLAXOSMITHKLINE-US2016GSK187893

PATIENT
  Age: 74 Year
  Sex: Female

DRUGS (6)
  1. MONTELUKAST SODIUM. [Concomitant]
     Active Substance: MONTELUKAST SODIUM
  2. FUROSEMIDE. [Concomitant]
     Active Substance: FUROSEMIDE
  3. FLOVENT [Suspect]
     Active Substance: FLUTICASONE PROPIONATE
     Indication: LUNG DISORDER
     Dosage: 2 PUFF(S), BID
     Route: 055
  4. FLOVENT [Suspect]
     Active Substance: FLUTICASONE PROPIONATE
     Indication: CHRONIC OBSTRUCTIVE PULMONARY DISEASE
  5. COMBIVENT [Concomitant]
     Active Substance: ALBUTEROL SULFATE\IPRATROPIUM BROMIDE
  6. ALBUTEROL. [Concomitant]
     Active Substance: ALBUTEROL

REACTIONS (3)
  - Bronchitis [Recovering/Resolving]
  - Malaise [Unknown]
  - Lung infection [Recovered/Resolved]

NARRATIVE: CASE EVENT DATE: 201611
